FAERS Safety Report 9949546 (Version 2)
Quarter: 2014Q1

REPORT INFORMATION
  Report Type: Report from Study
  Country: CA (occurrence: CA)
  Receive Date: 20140304
  Receipt Date: 20140320
  Transmission Date: 20141002
  Serious: Yes (Other)
  Sender: FDA-Public Use
  Company Number: CA-ROCHE-1359032

PATIENT
  Sex: Male

DRUGS (5)
  1. PEGASYS [Suspect]
     Indication: HEPATITIS C
     Route: 058
  2. PEGASYS [Suspect]
     Route: 065
  3. RIBAVIRIN [Suspect]
     Indication: HEPATITIS C
     Route: 048
  4. RIBAVIRIN [Suspect]
     Route: 065
  5. VICTRELIS [Suspect]
     Indication: HEPATITIS C
     Route: 048

REACTIONS (3)
  - Dysgeusia [Unknown]
  - Nausea [Unknown]
  - Fatigue [Unknown]
